FAERS Safety Report 4952698-7 (Version None)
Quarter: 2006Q1

REPORT INFORMATION
  Report Type: 
  Country: None (occurrence: None)
  Receive Date: 20060321
  Receipt Date: 20050412
  Transmission Date: 20060701
  Serious: Yes (Death)
  Sender: FDA-Public Use
  Company Number: JPKYO-L-20060001

PATIENT
  Age: 64 Year
  Sex: Male

DRUGS (9)
  1. NAVELBINE [Suspect]
     Indication: PLEURAL MESOTHELIOMA
     Dates: start: 20040212, end: 20040212
  2. NAVELBINE [Suspect]
     Indication: PLEURAL MESOTHELIOMA
     Dates: end: 20040311
  3. GEMZAR [Concomitant]
  4. PARAPLATIN [Concomitant]
  5. SOLU-CORTEF [Concomitant]
  6. DECADRON SRC [Concomitant]
  7. PREDONINE [Concomitant]
  8. CRAVIT [Concomitant]
  9. OMEGACIN [Concomitant]

REACTIONS (6)
  - CONDITION AGGRAVATED [None]
  - INTERSTITIAL LUNG DISEASE [None]
  - LUNG DISORDER [None]
  - PNEUMONIA [None]
  - PNEUMONIA VIRAL [None]
  - RESPIRATORY FAILURE [None]
